FAERS Safety Report 10287883 (Version 2)
Quarter: 2015Q3

REPORT INFORMATION
  Report Type: Spontaneous
  Country: US (occurrence: US)
  Receive Date: 20140709
  Receipt Date: 20150814
  Transmission Date: 20151125
  Serious: No
  Sender: FDA-Public Use
  Company Number: US-GILEAD-2013-0081471

PATIENT
  Age: 37 Year
  Sex: Female

DRUGS (3)
  1. ADCIRCA [Concomitant]
     Active Substance: TADALAFIL
  2. LETAIRIS [Suspect]
     Active Substance: AMBRISENTAN
     Indication: PRODUCT USED FOR UNKNOWN INDICATION
     Dosage: 10 MG, QD
     Route: 048
     Dates: start: 20130520
  3. TYVASO [Concomitant]
     Active Substance: TREPROSTINIL

REACTIONS (5)
  - Nausea [Unknown]
  - Blood pressure abnormal [Unknown]
  - Flushing [Unknown]
  - Epistaxis [Unknown]
  - Headache [Unknown]
